FAERS Safety Report 4732260-1 (Version None)
Quarter: 2005Q3

REPORT INFORMATION
  Report Type: 
  Country: None (occurrence: None)
  Receive Date: 20050726
  Receipt Date: 20040316
  Transmission Date: 20060218
  Serious: Yes (Other)
  Sender: FDA-Public Use
  Company Number: 04GER0035

PATIENT
  Age: 70 Year
  Sex: Female

DRUGS (9)
  1. AGGRASTAT [Suspect]
     Indication: ACUTE MYOCARDIAL INFARCTION
     Dates: start: 20040209, end: 20040210
  2. ENOXAPARIN SODIUM [Concomitant]
  3. ESTRADIOL [Concomitant]
  4. GINKGO BILOBA EXTRACT [Concomitant]
  5. HYDROCHLOROTHIAZIDE [Concomitant]
  6. VALSARTAN [Concomitant]
  7. NITRENDIPINE [Concomitant]
  8. PANCREATIN [Concomitant]
  9. RANITIDINE [Concomitant]

REACTIONS (1)
  - IDIOPATHIC THROMBOCYTOPENIC PURPURA [None]
